FAERS Safety Report 7076639-4 (Version None)
Quarter: 2010Q4

REPORT INFORMATION
  Report Type: 
  Country: None (occurrence: None)
  Receive Date: 20101101
  Receipt Date: 20101027
  Transmission Date: 20110411
  Serious: No
  Sender: FDA-Public Use
  Company Number: US-PFIZER INC-2010137162

PATIENT
  Sex: Male

DRUGS (4)
  1. SUTENT [Suspect]
     Indication: NEOPLASM MALIGNANT
     Dosage: 25 MG, 1X/DAY
     Route: 048
     Dates: start: 20100525
  2. PLAVIX [Concomitant]
     Indication: ANTICOAGULANT THERAPY
     Dosage: 75 MG, 1X/DAY
     Route: 048
     Dates: start: 20060801
  3. AVODART [Concomitant]
     Indication: URINARY RETENTION
     Dosage: 0.5 MG, 1X/DAY
     Route: 048
     Dates: start: 20080201
  4. AVODART [Concomitant]
     Indication: PROSTATIC DISORDER

REACTIONS (1)
  - DIARRHOEA [None]
